FAERS Safety Report 10622364 (Version 1)
Quarter: 2014Q4

REPORT INFORMATION
  Report Type: Report from Study
  Country: IL (occurrence: IL)
  Receive Date: 20141203
  Receipt Date: 20141203
  Transmission Date: 20150529
  Serious: Yes (Death, Hospitalization)
  Sender: FDA-Public Use
  Company Number: DE-ASTRAZENECA-2014SE92084

PATIENT
  Age: 66 Year
  Sex: Female

DRUGS (3)
  1. OMEPRAZOLE MAGNESIUM. [Suspect]
     Active Substance: OMEPRAZOLE MAGNESIUM
     Route: 048
  2. METHOTREXATE [Interacting]
     Active Substance: METHOTREXATE
     Indication: DERMATOMYOSITIS
     Route: 065
  3. GEMCITABINE [Concomitant]
     Active Substance: GEMCITABINE\GEMCITABINE HYDROCHLORIDE

REACTIONS (5)
  - Sepsis [Fatal]
  - Drug interaction [Unknown]
  - Pancytopenia [Fatal]
  - Toxicity to various agents [Unknown]
  - Hepatotoxicity [Unknown]
